FAERS Safety Report 24862964 (Version 1)
Quarter: 2025Q1

REPORT INFORMATION
  Report Type: Spontaneous
  Country: BR (occurrence: BR)
  Receive Date: 20250120
  Receipt Date: 20250120
  Transmission Date: 20250408
  Serious: Yes (Hospitalization, Other)
  Sender: PFIZER
  Company Number: BR-PFIZER INC-202500010622

PATIENT
  Age: 32 Year
  Sex: Female

DRUGS (1)
  1. DEPO-PROVERA [Suspect]
     Active Substance: MEDROXYPROGESTERONE ACETATE
     Dates: start: 20250115

REACTIONS (3)
  - Drug hypersensitivity [Unknown]
  - Laryngeal oedema [Unknown]
  - Rash [Unknown]

NARRATIVE: CASE EVENT DATE: 20250115
